FAERS Safety Report 24268261 (Version 1)
Quarter: 2024Q3

REPORT INFORMATION
  Report Type: Spontaneous
  Country: FR (occurrence: None)
  Receive Date: 20240830
  Receipt Date: 20240830
  Transmission Date: 20241017
  Serious: Yes (Other)
  Sender: Valinor Pharma
  Company Number: FR-Valinor Pharma, LLC-VLR202408-000099

PATIENT
  Age: 31 Year
  Sex: Female

DRUGS (53)
  1. NALOXEGOL OXALATE [Suspect]
     Active Substance: NALOXEGOL OXALATE
     Indication: Constipation
     Route: 048
     Dates: start: 20240405, end: 20240605
  2. NALOXEGOL OXALATE [Suspect]
     Active Substance: NALOXEGOL OXALATE
     Route: 048
     Dates: start: 20240605, end: 20240614
  3. NALOXEGOL OXALATE [Suspect]
     Active Substance: NALOXEGOL OXALATE
     Route: 048
     Dates: start: 20240705, end: 20240718
  4. LIDOCAINE [Suspect]
     Active Substance: LIDOCAINE
     Indication: Pain
     Route: 061
     Dates: start: 20240221, end: 20240514
  5. LIDOCAINE [Suspect]
     Active Substance: LIDOCAINE
     Route: 061
     Dates: start: 20240621, end: 20240718
  6. SKENAN [Suspect]
     Active Substance: MORPHINE SULFATE
     Indication: Pain
     Route: 048
     Dates: start: 20240514, end: 20240524
  7. SKENAN [Suspect]
     Active Substance: MORPHINE SULFATE
     Route: 048
     Dates: start: 20240524, end: 20240610
  8. SKENAN [Suspect]
     Active Substance: MORPHINE SULFATE
     Route: 048
     Dates: start: 20240610, end: 20240613
  9. SKENAN [Suspect]
     Active Substance: MORPHINE SULFATE
     Route: 048
     Dates: start: 20240610, end: 20240610
  10. DUPHALAC [Suspect]
     Active Substance: LACTULOSE
     Indication: Constipation
     Route: 048
     Dates: start: 20240322, end: 20240401
  11. DUPHALAC [Suspect]
     Active Substance: LACTULOSE
     Route: 048
     Dates: start: 20240405, end: 20240604
  12. DUPHALAC [Suspect]
     Active Substance: LACTULOSE
     Route: 048
     Dates: start: 20240404, end: 20240405
  13. DUPHALAC [Suspect]
     Active Substance: LACTULOSE
     Route: 048
     Dates: start: 20240627
  14. MOVICOL [Suspect]
     Active Substance: POLYETHYLENE GLYCOL 3350\POTASSIUM CHLORIDE\SODIUM BICARBONATE\SODIUM CHLORIDE
     Indication: Constipation
     Route: 048
     Dates: start: 20240604, end: 20240626
  15. MOVICOL [Suspect]
     Active Substance: POLYETHYLENE GLYCOL 3350\POTASSIUM CHLORIDE\SODIUM BICARBONATE\SODIUM CHLORIDE
     Route: 048
     Dates: start: 20240130, end: 20240226
  16. MOVICOL [Suspect]
     Active Substance: POLYETHYLENE GLYCOL 3350\POTASSIUM CHLORIDE\SODIUM BICARBONATE\SODIUM CHLORIDE
     Route: 048
     Dates: start: 20240119, end: 20240122
  17. MOVICOL [Suspect]
     Active Substance: POLYETHYLENE GLYCOL 3350\POTASSIUM CHLORIDE\SODIUM BICARBONATE\SODIUM CHLORIDE
     Route: 048
     Dates: start: 20240626, end: 20240627
  18. MOVICOL [Suspect]
     Active Substance: POLYETHYLENE GLYCOL 3350\POTASSIUM CHLORIDE\SODIUM BICARBONATE\SODIUM CHLORIDE
     Route: 048
     Dates: start: 20240115, end: 20240119
  19. CLOZAPINE [Suspect]
     Active Substance: CLOZAPINE
     Indication: Schizophrenia
     Route: 048
     Dates: start: 20240104, end: 20240108
  20. CLOZAPINE [Suspect]
     Active Substance: CLOZAPINE
     Route: 048
     Dates: start: 20240108, end: 20240112
  21. CLOZAPINE [Suspect]
     Active Substance: CLOZAPINE
     Route: 048
     Dates: start: 20240119, end: 20240426
  22. CLOZAPINE [Suspect]
     Active Substance: CLOZAPINE
     Route: 048
     Dates: start: 20240112, end: 20240119
  23. CLOZAPINE [Suspect]
     Active Substance: CLOZAPINE
     Route: 048
     Dates: start: 20240514
  24. CYAMEMAZINE [Suspect]
     Active Substance: CYAMEMAZINE
     Indication: Psychotic disorder
     Route: 048
     Dates: start: 20240104, end: 20240112
  25. CYAMEMAZINE [Suspect]
     Active Substance: CYAMEMAZINE
     Route: 048
     Dates: start: 20240112, end: 20240322
  26. CYAMEMAZINE [Suspect]
     Active Substance: CYAMEMAZINE
     Route: 048
     Dates: start: 20240322, end: 20240511
  27. CYAMEMAZINE [Suspect]
     Active Substance: CYAMEMAZINE
     Route: 048
     Dates: start: 20240511, end: 20240708
  28. CYAMEMAZINE [Suspect]
     Active Substance: CYAMEMAZINE
     Route: 048
     Dates: start: 20240708, end: 20240711
  29. FLUPENTIXOL [Suspect]
     Active Substance: FLUPENTIXOL
     Indication: Psychotic disorder
     Route: 048
     Dates: start: 20240515, end: 20240529
  30. FLUPENTIXOL [Suspect]
     Active Substance: FLUPENTIXOL
     Route: 048
     Dates: start: 20240529, end: 20240611
  31. FLUPENTIXOL [Suspect]
     Active Substance: FLUPENTIXOL
     Route: 048
     Dates: start: 20240611, end: 20240624
  32. FLUPENTIXOL [Suspect]
     Active Substance: FLUPENTIXOL
     Route: 048
     Dates: start: 20240624, end: 20240704
  33. FLUPENTIXOL [Suspect]
     Active Substance: FLUPENTIXOL
     Route: 048
     Dates: start: 20240704, end: 20240704
  34. FLUPENTIXOL [Suspect]
     Active Substance: FLUPENTIXOL
     Route: 048
     Dates: start: 20240704, end: 20240718
  35. GABAPENTIN [Suspect]
     Active Substance: GABAPENTIN
     Indication: Neuralgia
     Route: 048
     Dates: start: 20240213, end: 20240216
  36. GABAPENTIN [Suspect]
     Active Substance: GABAPENTIN
     Route: 048
     Dates: start: 20240216, end: 20240221
  37. GABAPENTIN [Suspect]
     Active Substance: GABAPENTIN
     Route: 048
     Dates: start: 20240221, end: 20240301
  38. GABAPENTIN [Suspect]
     Active Substance: GABAPENTIN
     Route: 048
     Dates: start: 20240301, end: 20240405
  39. GABAPENTIN [Suspect]
     Active Substance: GABAPENTIN
     Route: 048
     Dates: start: 20240405, end: 20240425
  40. GABAPENTIN [Suspect]
     Active Substance: GABAPENTIN
     Route: 048
     Dates: start: 20240425, end: 20240619
  41. GABAPENTIN [Suspect]
     Active Substance: GABAPENTIN
     Route: 048
     Dates: start: 20240619
  42. MORPHINE SULFATE [Suspect]
     Active Substance: MORPHINE SULFATE
     Indication: Pain
     Route: 048
     Dates: start: 20240112, end: 20240115
  43. MORPHINE SULFATE [Suspect]
     Active Substance: MORPHINE SULFATE
     Route: 048
  44. SCOPOLAMINE [Suspect]
     Active Substance: SCOPOLAMINE
     Indication: Salivary hypersecretion
     Route: 062
     Dates: start: 20240629, end: 20240718
  45. IMOVANE [Suspect]
     Active Substance: ZOPICLONE
     Indication: Insomnia
     Route: 048
     Dates: start: 20240511, end: 20240511
  46. IMOVANE [Suspect]
     Active Substance: ZOPICLONE
     Route: 048
     Dates: start: 20240614
  47. ACUPAN [Concomitant]
     Active Substance: NEFOPAM HYDROCHLORIDE
     Indication: Pain
     Dates: start: 20240221, end: 20240530
  48. VALIUM [Concomitant]
     Active Substance: DIAZEPAM
     Indication: Product used for unknown indication
     Route: 065
  49. FOLIC ACID [Concomitant]
     Active Substance: FOLIC ACID
     Indication: Folate deficiency
     Dates: start: 20240119, end: 20240530
  50. OXYCONTIN [Concomitant]
     Active Substance: OXYCODONE HYDROCHLORIDE
     Indication: Pain
     Dates: start: 20240123, end: 20240514
  51. ABILIFY [Concomitant]
     Active Substance: ARIPIPRAZOLE
     Indication: Pain
     Route: 065
     Dates: start: 20240119, end: 20240515
  52. FERROUS SULFATE [Concomitant]
     Active Substance: FERROUS SULFATE
     Indication: Iron deficiency
     Route: 065
  53. OXYCODONE HYDROCHLORIDE [Concomitant]
     Active Substance: OXYCODONE HYDROCHLORIDE
     Dates: start: 20240115, end: 20240514

REACTIONS (1)
  - Hyperprolactinaemia [Recovering/Resolving]

NARRATIVE: CASE EVENT DATE: 20240701
